FAERS Safety Report 23657982 (Version 2)
Quarter: 2024Q1

REPORT INFORMATION
  Report Type: Spontaneous
  Country: US (occurrence: US)
  Receive Date: 20240321
  Receipt Date: 20240325
  Transmission Date: 20240410
  Serious: Yes (Death)
  Sender: FDA-Public Use
  Company Number: US-002147023-NVSC2024US061593

PATIENT
  Age: 73 Year
  Sex: Male
  Weight: 72.3 kg

DRUGS (1)
  1. LUTATHERA [Suspect]
     Active Substance: LUTETIUM OXODOTREOTIDE LU-177
     Indication: Neuroendocrine carcinoma
     Dosage: 200 MCI
     Route: 042
     Dates: start: 20240206, end: 20240322

REACTIONS (1)
  - Death [Fatal]

NARRATIVE: CASE EVENT DATE: 20240320
